FAERS Safety Report 23647297 (Version 1)
Quarter: 2024Q1

REPORT INFORMATION
  Report Type: Spontaneous
  Country: CN (occurrence: CN)
  Receive Date: 20240319
  Receipt Date: 20240319
  Transmission Date: 20240410
  Serious: Yes (Hospitalization, Other)
  Sender: FDA-Public Use
  Company Number: CN-002147023-NVSC2024CN058273

PATIENT
  Age: 48 Year
  Sex: Male
  Weight: 48 kg

DRUGS (1)
  1. CARBAMAZEPINE [Suspect]
     Active Substance: CARBAMAZEPINE
     Indication: Epilepsy
     Dosage: 0.60 G, BID
     Route: 048
     Dates: end: 20240225

REACTIONS (11)
  - Depressed level of consciousness [Recovered/Resolved]
  - Hepatic failure [Recovered/Resolved]
  - Blood sodium decreased [Recovered/Resolved]
  - Blood chloride decreased [Recovered/Resolved]
  - Hypertonia [Recovered/Resolved]
  - Gait disturbance [Recovered/Resolved]
  - Romberg test positive [Recovered/Resolved]
  - White blood cell count decreased [Recovered/Resolved]
  - Muscular weakness [Recovered/Resolved]
  - Ataxia [Recovered/Resolved]
  - Blood pressure decreased [Recovered/Resolved]

NARRATIVE: CASE EVENT DATE: 20240215
